FAERS Safety Report 22531229 (Version 1)
Quarter: 2023Q2

REPORT INFORMATION
  Report Type: Spontaneous
  Country: US (occurrence: None)
  Receive Date: 20230606
  Receipt Date: 20230606
  Transmission Date: 20230722
  Serious: Yes (Life-Threatening, Hospitalization, Disabling)
  Sender: FDA-Public Use
  Company Number: None

PATIENT
  Age: 60 Year
  Sex: Male

DRUGS (1)
  1. KEYTRUDA [Suspect]
     Active Substance: PEMBROLIZUMAB
     Indication: Neoplasm malignant
     Dates: start: 20230111, end: 20230111

REACTIONS (4)
  - Liver transplant [None]
  - Liver injury [None]
  - Hepatitis [None]
  - Recurrent cancer [None]

NARRATIVE: CASE EVENT DATE: 20230203
